FAERS Safety Report 8014491-0 (Version None)
Quarter: 2011Q4

REPORT INFORMATION
  Report Type: 
  Country: None (occurrence: None)
  Receive Date: 20111229
  Receipt Date: 20111220
  Transmission Date: 20120403
  Serious: Yes (Hospitalization)
  Sender: FDA-Public Use
  Company Number: FR-ASTRAZENECA-2011SE77275

PATIENT
  Age: 72 Year
  Sex: Female

DRUGS (4)
  1. NEXIUM [Suspect]
     Route: 048
  2. IMOVANE [Suspect]
     Indication: SLEEP DISORDER
     Route: 065
  3. ACETAMINOPHEN [Suspect]
     Indication: PAIN
     Route: 065
  4. XARELTO [Suspect]
     Indication: THROMBOSIS PROPHYLAXIS
     Route: 048
     Dates: start: 20110927

REACTIONS (1)
  - THROMBOPHLEBITIS [None]
